FAERS Safety Report 24270097 (Version 1)
Quarter: 2024Q3

REPORT INFORMATION
  Report Type: Spontaneous
  Country: US (occurrence: US)
  Receive Date: 20240830
  Receipt Date: 20240830
  Transmission Date: 20241016
  Serious: No
  Sender: PERRIGO
  Company Number: US-PERRIGO-24US003729

PATIENT
  Age: 85 Year
  Sex: Male
  Weight: 86.621 kg

DRUGS (1)
  1. TRIAMCINOLONE ACETONIDE [Suspect]
     Active Substance: TRIAMCINOLONE ACETONIDE
     Indication: Sinus congestion
     Dosage: 55 MCG IN EACH NOSTRIL, SINGLE
     Route: 045
     Dates: start: 20240415, end: 20240415

REACTIONS (2)
  - Accidental exposure to product [Recovered/Resolved]
  - Off label use [Recovered/Resolved]

NARRATIVE: CASE EVENT DATE: 20240415
